FAERS Safety Report 7985207-9 (Version None)
Quarter: 2011Q4

REPORT INFORMATION
  Report Type: 
  Country: None (occurrence: None)
  Receive Date: 20111216
  Receipt Date: 20111213
  Transmission Date: 20120403
  Serious: No
  Sender: FDA-Public Use
  Company Number: PL-SANOFI-AVENTIS-2011SA081680

PATIENT
  Age: 41 Year
  Sex: Female
  Weight: 84 kg

DRUGS (3)
  1. LEFLUNOMIDE [Suspect]
     Route: 048
     Dates: start: 20110728, end: 20111210
  2. LEFLUNOMIDE [Suspect]
     Indication: RHEUMATOID ARTHRITIS
     Route: 048
     Dates: start: 20110725, end: 20110727
  3. METHYLPREDNISOLONE [Concomitant]
     Indication: RHEUMATOID ARTHRITIS
     Route: 048

REACTIONS (1)
  - PREGNANCY [None]
